FAERS Safety Report 7703339-7 (Version None)
Quarter: 2011Q3

REPORT INFORMATION
  Report Type: 
  Country: None (occurrence: None)
  Receive Date: 20110823
  Receipt Date: 20110811
  Transmission Date: 20111222
  Serious: Yes (Other)
  Sender: FDA-Public Use
  Company Number: US-ELI_LILLY_AND_COMPANY-US201107002852

PATIENT
  Sex: Female

DRUGS (14)
  1. CYMBALTA [Suspect]
     Dosage: 90 MG, QD
     Dates: end: 20110623
  2. TRICOR [Concomitant]
  3. FOLIC ACID [Concomitant]
     Dosage: 800 MG, UNK
  4. VITAMIN D [Concomitant]
  5. CYMBALTA [Suspect]
     Indication: DEPRESSION
     Dosage: 90 MG, QD
     Dates: start: 20070101
  6. CYMBALTA [Suspect]
     Dosage: 120 MG, QD
  7. ASPIRIN [Concomitant]
  8. ATENOLOL [Concomitant]
     Dosage: 50 MG, UNK
  9. PROVIGIL [Concomitant]
  10. FISH OIL [Concomitant]
     Dosage: 3000 MG, UNK
  11. NEXIUM [Concomitant]
  12. VICODIN ES [Concomitant]
  13. MORPHINE [Concomitant]
  14. NIASPAN [Concomitant]
     Dosage: 500 MG, UNK

REACTIONS (14)
  - CRYING [None]
  - HEART VALVE INCOMPETENCE [None]
  - INSOMNIA [None]
  - DRY EYE [None]
  - ANGINA PECTORIS [None]
  - PULSE PRESSURE DECREASED [None]
  - BLOOD PRESSURE INCREASED [None]
  - FATIGUE [None]
  - DRUG INEFFECTIVE [None]
  - HEADACHE [None]
  - DRUG DOSE OMISSION [None]
  - WITHDRAWAL SYNDROME [None]
  - DEPRESSED MOOD [None]
  - VISUAL ACUITY REDUCED [None]
